FAERS Safety Report 9680822 (Version 1)
Quarter: 2013Q4

REPORT INFORMATION
  Report Type: Spontaneous
  Country: US (occurrence: None)
  Receive Date: 20131108
  Receipt Date: 20131108
  Transmission Date: 20140711
  Serious: Yes (Other)
  Sender: FDA-Public Use
  Company Number: None

PATIENT
  Age: 37 Year
  Sex: Female

DRUGS (3)
  1. AUBAGIO [Suspect]
     Indication: MULTIPLE SCLEROSIS
     Dosage: 1 TABLET BY MOUTH
     Dates: start: 20130821, end: 20131024
  2. ZANAFLEX [Concomitant]
  3. BIRTH CONTROL MEDICATION [Concomitant]

REACTIONS (5)
  - Skin exfoliation [None]
  - Drug interaction [None]
  - Arthropod bite [None]
  - Immune system disorder [None]
  - Drug effect decreased [None]
